FAERS Safety Report 10396642 (Version 2)
Quarter: 2014Q3

REPORT INFORMATION
  Report Type: Spontaneous
  Country: US (occurrence: US)
  Receive Date: 20140820
  Receipt Date: 20140820
  Transmission Date: 20150326
  Serious: Yes (Hospitalization)
  Sender: FDA-Public Use
  Company Number: US-GLAXOSMITHKLINE-A0839984A

PATIENT
  Sex: Male
  Weight: 125 kg

DRUGS (2)
  1. AVANDIA [Suspect]
     Active Substance: ROSIGLITAZONE MALEATE
     Indication: DIABETES MELLITUS
     Dosage: 8MG PER DAY
     Route: 048
     Dates: start: 20041014, end: 20071022
  2. ROSIGLITAZONE MALEATE. [Suspect]
     Active Substance: ROSIGLITAZONE MALEATE
     Indication: DIABETES MELLITUS
     Route: 048
     Dates: start: 20050916, end: 20051115

REACTIONS (5)
  - Cardiac disorder [Unknown]
  - Chest pain [Unknown]
  - Coronary artery disease [Unknown]
  - Myocardial infarction [Unknown]
  - Ventricular tachycardia [Unknown]
